FAERS Safety Report 5672376-9 (Version None)
Quarter: 2008Q1

REPORT INFORMATION
  Report Type: 
  Country: None (occurrence: None)
  Receive Date: 20080319
  Receipt Date: 20080307
  Transmission Date: 20080703
  Serious: Yes (Other)
  Sender: FDA-Public Use
  Company Number: PHBS2008IT03210

PATIENT
  Age: 66 Year
  Sex: Female

DRUGS (5)
  1. IMATINIB [Suspect]
     Indication: CHRONIC MYELOID LEUKAEMIA
     Dosage: 600 MG/DAY
     Route: 048
     Dates: start: 20010601
  2. INTERFERON ALFA [Concomitant]
     Dates: start: 19941001
  3. INSULIN [Concomitant]
     Dosage: 45 IU/DAY
  4. HYDROXYUREA [Concomitant]
  5. MERCAPTOPURINE [Concomitant]

REACTIONS (3)
  - BLOOD GLUCOSE INCREASED [None]
  - DRUG RESISTANCE [None]
  - WEIGHT INCREASED [None]
